FAERS Safety Report 4870751-3 (Version None)
Quarter: 2005Q4

REPORT INFORMATION
  Report Type: 
  Country: None (occurrence: None)
  Receive Date: 20051229
  Receipt Date: 20051220
  Transmission Date: 20060501
  Serious: Yes (Hospitalization)
  Sender: FDA-Public Use
  Company Number: GXKR2005FR02184

PATIENT
  Age: 34 Year
  Sex: Male

DRUGS (3)
  1. IBUPROFEN [Suspect]
     Indication: TOOTHACHE
     Dosage: 1200 MG, QD, ORAL
     Route: 048
     Dates: start: 20050705, end: 20050718
  2. RODOGYL (METRONIDAZOLE, SPIRAMYCIN) [Concomitant]
  3. KLIPAL (CODEINE PHOSPHATE HEMIHYDRATE, PARACETAMOL) [Concomitant]

REACTIONS (6)
  - ABSCESS [None]
  - CELLULITIS [None]
  - FISTULA [None]
  - PAIN [None]
  - SKIN DISORDER [None]
  - TOOTH EXTRACTION [None]
